FAERS Safety Report 14279204 (Version 3)
Quarter: 2018Q1

REPORT INFORMATION
  Report Type: Report from Study
  Country: US (occurrence: US)
  Receive Date: 20171212
  Receipt Date: 20180131
  Transmission Date: 20180508
  Serious: Yes (Hospitalization, Other)
  Sender: FDA-Public Use
  Company Number: US-TESARO, INC.-US-2017TSO04338

PATIENT

DRUGS (2)
  1. ZEJULA [Suspect]
     Active Substance: NIRAPARIB
     Dosage: 200 MG, QD
     Route: 048
     Dates: start: 201712
  2. ZEJULA [Suspect]
     Active Substance: NIRAPARIB
     Indication: OVARIAN CANCER
     Dosage: 300 MG, QD
     Route: 048
     Dates: start: 20171130, end: 20171219

REACTIONS (21)
  - Dehydration [Not Recovered/Not Resolved]
  - Retching [Not Recovered/Not Resolved]
  - Adverse drug reaction [Not Recovered/Not Resolved]
  - Pneumonia [Not Recovered/Not Resolved]
  - Muscular weakness [Not Recovered/Not Resolved]
  - Nausea [Not Recovered/Not Resolved]
  - Blood sodium abnormal [Not Recovered/Not Resolved]
  - Cough [Recovering/Resolving]
  - Constipation [Unknown]
  - Blood potassium abnormal [Not Recovered/Not Resolved]
  - Influenza [Not Recovered/Not Resolved]
  - Drug dose omission [Unknown]
  - Decreased appetite [Not Recovered/Not Resolved]
  - Hypotension [Unknown]
  - Malaise [Not Recovered/Not Resolved]
  - Infection [Not Recovered/Not Resolved]
  - Decreased activity [Not Recovered/Not Resolved]
  - Hot flush [Not Recovered/Not Resolved]
  - Vomiting [Recovered/Resolved]
  - Blood creatinine abnormal [Not Recovered/Not Resolved]
  - Productive cough [Recovering/Resolving]

NARRATIVE: CASE EVENT DATE: 201712
